FAERS Safety Report 23846893 (Version 1)
Quarter: 2024Q2

REPORT INFORMATION
  Report Type: Spontaneous
  Country: CN (occurrence: CN)
  Receive Date: 20240513
  Receipt Date: 20240513
  Transmission Date: 20240716
  Serious: Yes (Other)
  Sender: FDA-Public Use
  Company Number: CN-BEIGENE-BGN-2024-006958

PATIENT

DRUGS (3)
  1. TISLELIZUMAB [Suspect]
     Active Substance: TISLELIZUMAB
     Indication: Ovarian cancer
     Dosage: 200 MILLIGRAM
     Route: 041
     Dates: start: 20231209
  2. IFOSFAMIDE [Suspect]
     Active Substance: IFOSFAMIDE
     Indication: Ovarian cancer
     Dosage: 2.5 GRAM, D1-D3
     Route: 041
     Dates: start: 20231209
  3. EPIRUBICIN HYDROCHLORIDE [Suspect]
     Active Substance: EPIRUBICIN HYDROCHLORIDE
     Indication: Ovarian cancer
     Dosage: 80 MILLIGRAM, D1
     Route: 041
     Dates: start: 20231209

REACTIONS (2)
  - Anal abscess [Recovering/Resolving]
  - Diarrhoea [Recovering/Resolving]

NARRATIVE: CASE EVENT DATE: 20231215
